FAERS Safety Report 16814426 (Version 5)
Quarter: 2019Q4

REPORT INFORMATION
  Report Type: Report from Study
  Country: None (occurrence: US)
  Receive Date: 20190917
  Receipt Date: 20191230
  Transmission Date: 20200122
  Serious: Yes (Other)
  Sender: FDA-Public Use
  Company Number: US-ABBVIE-19K-163-2921852-00

PATIENT
  Sex: Male
  Weight: 90.8 kg

DRUGS (4)
  1. HUMIRA [Suspect]
     Active Substance: ADALIMUMAB
     Route: 058
  2. HUMIRA [Suspect]
     Active Substance: ADALIMUMAB
     Indication: CROHN^S DISEASE
     Route: 058
     Dates: start: 2015
  3. HUMIRA [Suspect]
     Active Substance: ADALIMUMAB
     Route: 058
  4. HUMIRA [Suspect]
     Active Substance: ADALIMUMAB
     Dosage: DOSE INCREASED
     Route: 058
     Dates: start: 2015

REACTIONS (12)
  - Blood iron decreased [Not Recovered/Not Resolved]
  - Melanocytic naevus [Not Recovered/Not Resolved]
  - Abdominal distension [Not Recovered/Not Resolved]
  - Anaemia [Not Recovered/Not Resolved]
  - Crohn^s disease [Not Recovered/Not Resolved]
  - Flatulence [Not Recovered/Not Resolved]
  - Intestinal obstruction [Recovered/Resolved]
  - Gastrointestinal scarring [Unknown]
  - Dizziness [Not Recovered/Not Resolved]
  - Fall [Not Recovered/Not Resolved]
  - Urinary retention [Not Recovered/Not Resolved]
  - Somnolence [Not Recovered/Not Resolved]

NARRATIVE: CASE EVENT DATE: 2019
